FAERS Safety Report 22651516 (Version 11)
Quarter: 2024Q2

REPORT INFORMATION
  Report Type: Report from Study
  Country: CA (occurrence: CA)
  Receive Date: 20230628
  Receipt Date: 20240522
  Transmission Date: 20240716
  Serious: Yes (Hospitalization, Other)
  Sender: FDA-Public Use
  Company Number: CA-TAKEDA-CA202005171

PATIENT
  Age: 41 Year
  Sex: Female

DRUGS (46)
  1. LANADELUMAB [Suspect]
     Active Substance: LANADELUMAB
     Indication: Hereditary angioedema with C1 esterase inhibitor deficiency
     Dosage: UNK
     Route: 050
     Dates: start: 20151107
  2. LANADELUMAB [Suspect]
     Active Substance: LANADELUMAB
     Dosage: UNK UNK, Q2WEEKS
     Route: 058
     Dates: start: 20200116
  3. LANADELUMAB [Suspect]
     Active Substance: LANADELUMAB
     Dosage: 30 MILLIGRAM
     Route: 065
     Dates: start: 20200428
  4. LANADELUMAB [Suspect]
     Active Substance: LANADELUMAB
     Dosage: 2 DOSAGE FORM, Q2WEEKS
     Route: 050
     Dates: start: 20220605
  5. LANADELUMAB [Suspect]
     Active Substance: LANADELUMAB
     Dosage: 2 DOSAGE FORM, Q2WEEKS
     Route: 050
  6. LANADELUMAB [Suspect]
     Active Substance: LANADELUMAB
     Dosage: 2 DOSAGE FORM, Q2WEEKS
     Route: 058
  7. LANADELUMAB [Suspect]
     Active Substance: LANADELUMAB
     Dosage: 2 DOSAGE FORM, Q2WEEKS
     Route: 050
  8. LANADELUMAB [Suspect]
     Active Substance: LANADELUMAB
     Dosage: UNK UNK, Q2WEEKS
     Route: 058
  9. FIRAZYR [Suspect]
     Active Substance: ICATIBANT ACETATE
     Indication: Hereditary angioedema
     Dosage: 30 MILLIGRAM
     Route: 065
     Dates: start: 20151107
  10. FIRAZYR [Suspect]
     Active Substance: ICATIBANT ACETATE
     Indication: Hereditary angioedema
     Dosage: 30 MILLIGRAM
     Route: 065
     Dates: start: 20151107
  11. FIRAZYR [Suspect]
     Active Substance: ICATIBANT ACETATE
     Indication: Hereditary angioedema with C1 esterase inhibitor deficiency
     Dosage: UNK
     Route: 065
     Dates: start: 20200330
  12. FIRAZYR [Suspect]
     Active Substance: ICATIBANT ACETATE
     Indication: Hereditary angioedema with C1 esterase inhibitor deficiency
     Dosage: UNK
     Route: 065
     Dates: start: 20200330
  13. FIRAZYR [Suspect]
     Active Substance: ICATIBANT ACETATE
     Dosage: 30 MILLIGRAM
     Route: 065
     Dates: start: 20200428
  14. FIRAZYR [Suspect]
     Active Substance: ICATIBANT ACETATE
     Dosage: 30 MILLIGRAM
     Route: 065
     Dates: start: 20200428
  15. FIRAZYR [Suspect]
     Active Substance: ICATIBANT ACETATE
     Dosage: 30 MILLIGRAM
     Route: 065
     Dates: start: 20211105
  16. FIRAZYR [Suspect]
     Active Substance: ICATIBANT ACETATE
     Dosage: 30 MILLIGRAM
     Route: 065
     Dates: start: 20211105
  17. FIRAZYR [Suspect]
     Active Substance: ICATIBANT ACETATE
     Dosage: 30 MILLIGRAM
     Route: 065
  18. FIRAZYR [Suspect]
     Active Substance: ICATIBANT ACETATE
     Dosage: 30 MILLIGRAM
     Route: 065
  19. FIRAZYR [Suspect]
     Active Substance: ICATIBANT ACETATE
     Dosage: 30 MILLIGRAM
     Route: 065
  20. FIRAZYR [Suspect]
     Active Substance: ICATIBANT ACETATE
     Dosage: 30 MILLIGRAM
     Route: 065
  21. FIRAZYR [Suspect]
     Active Substance: ICATIBANT ACETATE
     Dosage: 30 MILLIGRAM
     Route: 065
  22. FIRAZYR [Suspect]
     Active Substance: ICATIBANT ACETATE
     Dosage: 30 MILLIGRAM
     Route: 065
  23. FIRAZYR [Suspect]
     Active Substance: ICATIBANT ACETATE
     Dosage: UNK
     Route: 058
  24. FIRAZYR [Suspect]
     Active Substance: ICATIBANT ACETATE
     Dosage: UNK
     Route: 058
  25. FIRAZYR [Suspect]
     Active Substance: ICATIBANT ACETATE
     Dosage: UNK
     Route: 058
  26. FIRAZYR [Suspect]
     Active Substance: ICATIBANT ACETATE
     Dosage: UNK
     Route: 058
  27. PREDNISONE [Suspect]
     Active Substance: PREDNISONE
     Indication: Product used for unknown indication
     Dosage: 50 MILLIGRAM
     Route: 065
  28. PREDNISONE [Suspect]
     Active Substance: PREDNISONE
     Dosage: 25 MILLIGRAM
     Route: 065
  29. PREDNISONE [Suspect]
     Active Substance: PREDNISONE
     Dosage: 60 MILLIGRAM, QD
     Route: 065
  30. METOPROLOL [Concomitant]
     Active Substance: METOPROLOL
     Dosage: UNK
     Route: 065
     Dates: start: 20151223
  31. SULFAMETHOXAZOLE AND TRIMETHOPRIM [Concomitant]
     Active Substance: SULFAMETHOXAZOLE\TRIMETHOPRIM
     Dosage: UNK UNK, QD
     Route: 065
  32. SULFAMETHOXAZOLE AND TRIMETHOPRIM [Concomitant]
     Active Substance: SULFAMETHOXAZOLE\TRIMETHOPRIM
     Dosage: 80 MILLIGRAM, QD
     Route: 065
  33. PANTOPRAZOLE [Concomitant]
     Active Substance: PANTOPRAZOLE
     Dosage: 40 MILLIGRAM, QD
     Route: 065
  34. PANTOPRAZOLE [Concomitant]
     Active Substance: PANTOPRAZOLE
     Dosage: 50 MILLIGRAM
     Route: 065
  35. LEMBOREXANT [Concomitant]
     Active Substance: LEMBOREXANT
     Indication: Insomnia
     Dosage: 5 MILLIGRAM
     Route: 065
  36. VITAMIN C [Concomitant]
     Active Substance: ASCORBIC ACID
     Dosage: UNK UNK, QD
     Route: 065
  37. VITAMIN D3 [Concomitant]
     Active Substance: CHOLECALCIFEROL
     Dosage: UNK UNK, QD
     Route: 065
  38. VITAMIN B12 [Concomitant]
     Active Substance: CYANOCOBALAMIN
     Dosage: UNK UNK, QD
     Route: 065
  39. RISEDRONATE SODIUM [Concomitant]
     Active Substance: RISEDRONATE SODIUM
     Dosage: 35 MILLIGRAM, 1/WEEK
     Route: 065
  40. PREGABALIN [Concomitant]
     Active Substance: PREGABALIN
     Dosage: 4 DOSAGE FORM, TID
     Route: 065
  41. PREGABALIN [Concomitant]
     Active Substance: PREGABALIN
     Dosage: 50 MILLIGRAM
     Route: 065
  42. FUROSEMIDE [Concomitant]
     Active Substance: FUROSEMIDE
     Dosage: 1 DOSAGE FORM, QD
     Route: 065
  43. FUROSEMIDE [Concomitant]
     Active Substance: FUROSEMIDE
     Dosage: 40 MILLIGRAM
     Route: 065
  44. AMITRIPTYLINE HYDROCHLORIDE [Concomitant]
     Active Substance: AMITRIPTYLINE HYDROCHLORIDE
     Dosage: 1 DOSAGE FORM, QD
     Route: 065
  45. AMITRIPTYLINE HYDROCHLORIDE [Concomitant]
     Active Substance: AMITRIPTYLINE HYDROCHLORIDE
     Dosage: 10 MILLIGRAM
     Route: 065
  46. DOXAZOSIN MESYLATE [Concomitant]
     Active Substance: DOXAZOSIN MESYLATE
     Dosage: 1 MILLIGRAM

REACTIONS (32)
  - Pneumonia [Not Recovered/Not Resolved]
  - Pneumonitis [Unknown]
  - Lung disorder [Unknown]
  - Dyspnoea [Recovering/Resolving]
  - Loss of consciousness [Unknown]
  - Illness [Unknown]
  - Mental disorder [Recovering/Resolving]
  - Fatigue [Unknown]
  - Throat tightness [Unknown]
  - Stress [Unknown]
  - Taste disorder [Unknown]
  - Dyspnoea exertional [Recovering/Resolving]
  - Tendonitis [Recovering/Resolving]
  - Pruritus [Unknown]
  - Memory impairment [Unknown]
  - Arthralgia [Not Recovered/Not Resolved]
  - Blood iron decreased [Unknown]
  - Drug ineffective [Not Recovered/Not Resolved]
  - Herpes zoster [Recovering/Resolving]
  - Potentiating drug interaction [Unknown]
  - Muscular weakness [Unknown]
  - Fluid retention [Not Recovered/Not Resolved]
  - Peripheral swelling [Unknown]
  - Dizziness [Unknown]
  - Scratch [Unknown]
  - Urticaria [Unknown]
  - Hereditary angioedema [Recovered/Resolved]
  - Product distribution issue [Unknown]
  - Expired product administered [Unknown]
  - Inappropriate schedule of product administration [Unknown]
  - Product dose omission issue [Unknown]
  - Product dose omission in error [Unknown]

NARRATIVE: CASE EVENT DATE: 20200122
